FAERS Safety Report 20953882 (Version 1)
Quarter: 2022Q2

REPORT INFORMATION
  Report Type: Spontaneous
  Country: US (occurrence: US)
  Receive Date: 20220614
  Receipt Date: 20220614
  Transmission Date: 20220721
  Serious: Yes (Hospitalization)
  Sender: FDA-Public Use
  Company Number: US-STRIDES ARCOLAB LIMITED-2022SP006968

PATIENT

DRUGS (1)
  1. DICLOFENAC [Suspect]
     Active Substance: DICLOFENAC
     Indication: Arthritis
     Dosage: UNK
     Route: 048

REACTIONS (3)
  - Gastrointestinal mucosal exfoliation [Recovered/Resolved]
  - Gastrointestinal mucosal disorder [Recovered/Resolved]
  - Gastritis [Recovered/Resolved]
